FAERS Safety Report 5480843-6 (Version None)
Quarter: 2007Q4

REPORT INFORMATION
  Report Type: 
  Country: None (occurrence: None)
  Receive Date: 20071009
  Receipt Date: 20070924
  Transmission Date: 20080405
  Serious: No
  Sender: FDA-Public Use
  Company Number: US-BOEHRINGER INGELHEIM PHARMACEUTICALS, INC.-2007-BP-21641BP

PATIENT
  Sex: Female

DRUGS (3)
  1. ZANTAC 75 [Suspect]
     Indication: DYSPEPSIA
     Route: 048
     Dates: start: 20070901
  2. ZANTAC 75 [Suspect]
  3. ZANTAC 75 [Suspect]
     Indication: HYPERCHLORHYDRIA

REACTIONS (2)
  - ERYTHEMA [None]
  - PRURITUS GENERALISED [None]
